FAERS Safety Report 7383845-8 (Version None)
Quarter: 2011Q1

REPORT INFORMATION
  Report Type: 
  Country: None (occurrence: None)
  Receive Date: 20110323
  Receipt Date: 20110314
  Transmission Date: 20110831
  Serious: Yes (Other)
  Sender: FDA-Public Use
  Company Number: 2011037319

PATIENT
  Age: 49 Year
  Sex: Male

DRUGS (7)
  1. CARBOPLATIN [Suspect]
     Indication: NON-SMALL CELL LUNG CANCER STAGE IV
     Dosage: 655 MG, DAILY, INTRAVENOUS
     Route: 042
     Dates: start: 20110202
  2. METOCLOPRAMIDE [Concomitant]
  3. ONDANSETRON [Concomitant]
  4. GEMCITABINE [Suspect]
     Indication: NON-SMALL CELL LUNG CANCER STAGE IV
     Dosage: 2280 MG, DAILY, INTRAVENOUS; 2280 MG,
     Route: 042
     Dates: start: 20110209
  5. GEMCITABINE [Suspect]
     Indication: NON-SMALL CELL LUNG CANCER STAGE IV
     Dosage: 2280 MG, DAILY, INTRAVENOUS; 2280 MG,
     Route: 042
     Dates: start: 20110202, end: 20110202
  6. DEXAMETHASONE [Concomitant]
  7. DALTEPARIN SODIUM [Suspect]
     Indication: NON-SMALL CELL LUNG CANCER STAGE IV
     Dates: start: 20110202

REACTIONS (2)
  - NEUTROPHIL COUNT DECREASED [None]
  - PLATELET COUNT DECREASED [None]
